FAERS Safety Report 7112935-X (Version None)
Quarter: 2010Q4

REPORT INFORMATION
  Report Type: 
  Country: None (occurrence: None)
  Receive Date: 20101119
  Receipt Date: 20101101
  Transmission Date: 20110411
  Serious: No
  Sender: FDA-Public Use
  Company Number: US-BAYER-201040391NA

PATIENT
  Age: 57 Year
  Sex: Female

DRUGS (1)
  1. MAGNEVIST [Suspect]
     Indication: NUCLEAR MAGNETIC RESONANCE IMAGING BRAIN
     Dosage: UNIT DOSE: 20 ML
     Route: 042
     Dates: start: 20101029, end: 20101029

REACTIONS (4)
  - DIZZINESS [None]
  - NASAL CONGESTION [None]
  - THROAT IRRITATION [None]
  - VOMITING [None]
